FAERS Safety Report 9373664 (Version 1)
Quarter: 2013Q2

REPORT INFORMATION
  Report Type: Spontaneous
  Country: AU (occurrence: AU)
  Receive Date: 20130627
  Receipt Date: 20130627
  Transmission Date: 20140414
  Serious: Yes (Hospitalization, Other)
  Sender: FDA-Public Use
  Company Number: PHHY2013US065754

PATIENT
  Age: 75 Year
  Sex: Male

DRUGS (4)
  1. ZOMETA [Suspect]
     Indication: PLASMA CELL MYELOMA
     Dosage: ONCE IN A MONTH
     Dates: start: 20130122
  2. REVLIMID [Suspect]
     Indication: PLASMA CELL MYELOMA
     Dosage: 15 MG,21 IN 28 D
     Route: 048
     Dates: start: 201107
  3. REVLIMID [Suspect]
     Dosage: 25 MG,DAILY
     Route: 048
     Dates: start: 20110721
  4. REVLIMID [Suspect]
     Dosage: 20 MG,DAILY
     Dates: start: 20130214

REACTIONS (13)
  - Lung infection [Recovered/Resolved]
  - Pyrexia [Unknown]
  - Neutrophil count decreased [Recovered/Resolved]
  - Lethargy [Unknown]
  - Productive cough [Unknown]
  - Haematocrit decreased [Unknown]
  - Haemoglobin decreased [Unknown]
  - Blood alkaline phosphatase increased [Unknown]
  - Red blood cell count decreased [Unknown]
  - Gamma-glutamyltransferase increased [Unknown]
  - White blood cell count decreased [Unknown]
  - Rash pruritic [Not Recovered/Not Resolved]
  - Chills [Unknown]
